FAERS Safety Report 19508097 (Version 1)
Quarter: 2021Q3

REPORT INFORMATION
  Report Type: Spontaneous
  Country: CA (occurrence: CA)
  Receive Date: 20210708
  Receipt Date: 20210708
  Transmission Date: 20211014
  Serious: Yes (Other)
  Sender: FDA-Public Use
  Company Number: CA-PFIZER INC-2021795310

PATIENT
  Age: 61 Year
  Sex: Female

DRUGS (12)
  1. ASA [Concomitant]
     Active Substance: ASPIRIN
     Route: 065
  2. BUPROPION. [Concomitant]
     Active Substance: BUPROPION
     Route: 065
  3. METFORMIN [Concomitant]
     Active Substance: METFORMIN HYDROCHLORIDE
  4. SALBUTAMOL [Concomitant]
     Active Substance: ALBUTEROL
  5. LEVOFLOXACIN. [Suspect]
     Active Substance: LEVOFLOXACIN
  6. RANITIDINE. [Concomitant]
     Active Substance: RANITIDINE
  7. ZYBAN [Interacting]
     Active Substance: BUPROPION HYDROCHLORIDE
     Dosage: UNK
  8. NICOTINE. [Concomitant]
     Active Substance: NICOTINE
  9. PREDNISONE. [Concomitant]
     Active Substance: PREDNISONE
  10. ROSUVASTATIN. [Concomitant]
     Active Substance: ROSUVASTATIN
     Route: 058
  11. VITAMIN B12 [Concomitant]
     Active Substance: CYANOCOBALAMIN
  12. MORPHINE [Concomitant]
     Active Substance: MORPHINE

REACTIONS (2)
  - Seizure [Recovering/Resolving]
  - Potentiating drug interaction [Recovering/Resolving]
